FAERS Safety Report 26121998 (Version 1)
Quarter: 2025Q4

REPORT INFORMATION
  Report Type: Spontaneous
  Country: US (occurrence: None)
  Receive Date: 20251203
  Receipt Date: 20251203
  Transmission Date: 20260118
  Serious: Yes (Life-Threatening, Hospitalization)
  Sender: FDA-CTU
  Company Number: None

PATIENT
  Age: 37 Year
  Sex: Male
  Weight: 57.15 kg

DRUGS (2)
  1. DEVICE [Suspect]
     Active Substance: DEVICE
  2. HUMAN IMMUNOGLOBULIN G [Suspect]
     Active Substance: HUMAN IMMUNOGLOBULIN G

REACTIONS (5)
  - Dyspnoea [None]
  - Chest discomfort [None]
  - Device failure [None]
  - Wrong technique in device usage process [None]
  - Therapy cessation [None]

NARRATIVE: CASE EVENT DATE: 20251201
